FAERS Safety Report 22714594 (Version 2)
Quarter: 2024Q1

REPORT INFORMATION
  Report Type: Spontaneous
  Country: GB (occurrence: GB)
  Receive Date: 20230718
  Receipt Date: 20240118
  Transmission Date: 20240410
  Serious: Yes (Other)
  Sender: FDA-Public Use
  Company Number: GB-MHRA-MED-202307031052164120-GYJWQ

PATIENT
  Age: 77 Year
  Sex: Female

DRUGS (3)
  1. DOXAZOSIN [Suspect]
     Active Substance: DOXAZOSIN MESYLATE
     Indication: Hypertension
     Dosage: 1 MILLIGRAM, ONCE A DAY
     Route: 065
  2. LOSARTAN [Suspect]
     Active Substance: LOSARTAN
     Indication: Hypertension
     Dosage: UNK(100 AND 150)
     Route: 065
     Dates: start: 20230309
  3. ADIZEM [Suspect]
     Active Substance: DILTIAZEM HYDROCHLORIDE
     Indication: Hypertension
     Dosage: 300 MILLIGRAM
     Route: 065
     Dates: start: 20230309

REACTIONS (1)
  - Abdominal discomfort [Not Recovered/Not Resolved]

NARRATIVE: CASE EVENT DATE: 20230309
